FAERS Safety Report 20190270 (Version 1)
Quarter: 2021Q4

REPORT INFORMATION
  Report Type: Other
  Country: CN (occurrence: None)
  Receive Date: 20211215
  Receipt Date: 20211215
  Transmission Date: 20220303
  Serious: Yes (Other)
  Sender: FDA-Public Use
  Company Number: CN-ROCHE-2980085

PATIENT
  Age: 53 Year
  Sex: Male

DRUGS (1)
  1. ALECTINIB [Suspect]
     Active Substance: ALECTINIB
     Indication: Squamous cell carcinoma of lung
     Route: 048
     Dates: start: 202006

REACTIONS (4)
  - Metastases to spine [Unknown]
  - Drug resistance [Unknown]
  - Disease progression [Unknown]
  - Drug ineffective [Unknown]
